FAERS Safety Report 4597342-6 (Version None)
Quarter: 2005Q1

REPORT INFORMATION
  Report Type: 
  Country: None (occurrence: None)
  Receive Date: 20050303
  Receipt Date: 20050218
  Transmission Date: 20050727
  Serious: Yes (Life-Threatening)
  Sender: FDA-Public Use
  Company Number: BE-BRISTOL-MYERS SQUIBB COMPANY-12870051

PATIENT
  Age: 74 Year
  Sex: Female

DRUGS (5)
  1. VINFLUNINE IV [Suspect]
     Indication: BREAST CANCER METASTATIC
     Dosage: INITIATED ON 09-FEB-2005.
     Route: 042
     Dates: start: 20050209, end: 20050209
  2. DOXORUBICIN [Suspect]
     Indication: BREAST CANCER METASTATIC
     Dosage: INITIATED ON 09-FEB-2005. REDUCED TO 40MG/M2 (FOR NEXT CYCLE)
     Route: 042
     Dates: start: 20050209, end: 20050209
  3. LEVOTHYROXINE [Concomitant]
     Dates: start: 19970101
  4. MOVICOL [Concomitant]
     Dates: start: 20050204
  5. ATACAND [Concomitant]

REACTIONS (12)
  - ANURIA [None]
  - CLOSTRIDIAL INFECTION [None]
  - DEHYDRATION [None]
  - ENTEROCOLITIS [None]
  - ESCHERICHIA INFECTION [None]
  - FEBRILE NEUTROPENIA [None]
  - GASTROINTESTINAL NECROSIS [None]
  - HYPOTENSION [None]
  - INTESTINAL INFARCTION [None]
  - NEUTROPENIC COLITIS [None]
  - SEPSIS [None]
  - STREPTOCOCCAL INFECTION [None]
